FAERS Safety Report 5226636-6 (Version None)
Quarter: 2007Q1

REPORT INFORMATION
  Report Type: 
  Country: None (occurrence: None)
  Receive Date: 20070129
  Receipt Date: 20061130
  Transmission Date: 20070707
  Serious: Yes (Death)
  Sender: FDA-Public Use
  Company Number: T200601619

PATIENT
  Age: 6 Year
  Sex: Male

DRUGS (1)
  1. METHADOSE [Suspect]
     Dosage: ORAL
     Route: 048

REACTIONS (15)
  - ACCIDENTAL DRUG INTAKE BY CHILD [None]
  - BASE EXCESS ABNORMAL [None]
  - BLOOD PH DECREASED [None]
  - BRADYCARDIA [None]
  - BRAIN OEDEMA [None]
  - CARDIO-RESPIRATORY ARREST [None]
  - CEREBRAL INFARCTION [None]
  - ELECTROMECHANICAL DISSOCIATION [None]
  - GENERALISED OEDEMA [None]
  - HYPERCAPNIA [None]
  - HYPERGLYCAEMIA [None]
  - HYPOTENSION [None]
  - PULMONARY HAEMORRHAGE [None]
  - VENTRICULAR FIBRILLATION [None]
  - VENTRICULAR TACHYCARDIA [None]
